FAERS Safety Report 11057524 (Version 1)
Quarter: 2015Q2

REPORT INFORMATION
  Report Type: Spontaneous
  Country: IN (occurrence: IN)
  Receive Date: 20150422
  Receipt Date: 20150422
  Transmission Date: 20150821
  Serious: Yes (Death, Hospitalization)
  Sender: FDA-Public Use
  Company Number: IN-ALLERGAN-1507242US

PATIENT
  Age: 14 Year
  Sex: Female

DRUGS (1)
  1. DAPSONE UNK [Suspect]
     Active Substance: DAPSONE
     Indication: URTICARIA CHRONIC
     Dosage: UNK

REACTIONS (7)
  - Cardiogenic shock [Fatal]
  - Off label use [Unknown]
  - Ventricular arrhythmia [Fatal]
  - Drug reaction with eosinophilia and systemic symptoms [Fatal]
  - Myocarditis [Fatal]
  - Hypokinesia [Fatal]
  - Thrombosis [Fatal]
